FAERS Safety Report 14944304 (Version 1)
Quarter: 2018Q2

REPORT INFORMATION
  Report Type: Spontaneous
  Country: RO (occurrence: RO)
  Receive Date: 20180528
  Receipt Date: 20180528
  Transmission Date: 20180711
  Serious: Yes (Other)
  Sender: FDA-Public Use
  Company Number: RO-AMGEN-ROUSP2018071591

PATIENT
  Age: 38 Year
  Sex: Male

DRUGS (1)
  1. ENBREL [Suspect]
     Active Substance: ETANERCEPT
     Indication: ANKYLOSING SPONDYLITIS
     Dosage: 50 MG, WEEKLY
     Route: 065

REACTIONS (4)
  - Ocular hyperaemia [Unknown]
  - Vision blurred [Unknown]
  - Eye pain [Unknown]
  - Uveitis [Unknown]
